FAERS Safety Report 9228860 (Version 1)
Quarter: 2013Q2

REPORT INFORMATION
  Report Type: Spontaneous
  Country: CH (occurrence: CH)
  Receive Date: 20130412
  Receipt Date: 20130412
  Transmission Date: 20140414
  Serious: Yes (Other)
  Sender: FDA-Public Use
  Company Number: PHHY2013CH031206

PATIENT
  Sex: Female

DRUGS (3)
  1. GILENYA [Suspect]
     Dosage: UNK
     Route: 048
     Dates: start: 20120227
  2. IRFEN [Concomitant]
     Dosage: UNK, PRN
  3. MINERVA [Concomitant]

REACTIONS (6)
  - Amnesia [Recovering/Resolving]
  - Fibrin D dimer increased [Recovering/Resolving]
  - Syncope [Recovering/Resolving]
  - Disorientation [Recovering/Resolving]
  - Feeling hot [Recovering/Resolving]
  - Nausea [Recovering/Resolving]
